FAERS Safety Report 20456394 (Version 1)
Quarter: 2022Q1

REPORT INFORMATION
  Report Type: Spontaneous
  Country: US (occurrence: None)
  Receive Date: 20220210
  Receipt Date: 20220210
  Transmission Date: 20220424
  Serious: Yes (Life-Threatening)
  Sender: FDA-Public Use
  Company Number: None

PATIENT
  Age: 60 Year
  Sex: Female
  Weight: 78 kg

DRUGS (1)
  1. ERAVACYCLINE [Suspect]
     Active Substance: ERAVACYCLINE

REACTIONS (8)
  - Subcutaneous haematoma [None]
  - Renal pain [None]
  - Serratia bacteraemia [None]
  - Abdominal infection [None]
  - Ascites [None]
  - Haematoma infection [None]
  - Blood culture positive [None]
  - Enterococcal infection [None]

NARRATIVE: CASE EVENT DATE: 20220202
